FAERS Safety Report 8852454 (Version 2)
Quarter: 2012Q4

REPORT INFORMATION
  Report Type: 
  Country: JP (occurrence: JP)
  Receive Date: 20121022
  Receipt Date: 20121102
  Transmission Date: 20130627
  Serious: Yes (Disabling, Other)
  Sender: FDA-Public Use
  Company Number: JP-PFIZER INC-2012259799

PATIENT
  Age: 80 Year
  Sex: Female

DRUGS (1)
  1. UNASYN-S [Suspect]
     Dosage: UNK
     Dates: start: 200605, end: 200606

REACTIONS (1)
  - Renal impairment [Unknown]
